FAERS Safety Report 9691119 (Version 3)
Quarter: 2015Q3

REPORT INFORMATION
  Report Type: Spontaneous
  Country: US (occurrence: US)
  Receive Date: 20131115
  Receipt Date: 20150929
  Transmission Date: 20151125
  Serious: Yes (Other)
  Sender: FDA-Public Use
  Company Number: US-GLAXOSMITHKLINE-A1025388A

PATIENT
  Age: 63 Year
  Sex: Male

DRUGS (2)
  1. VOTRIENT [Suspect]
     Active Substance: PAZOPANIB HYDROCHLORIDE
     Indication: RENAL CANCER
     Dosage: 400 MG, QD
  2. VOTRIENT [Suspect]
     Active Substance: PAZOPANIB HYDROCHLORIDE
     Indication: MALIGNANT URINARY TRACT NEOPLASM
     Dosage: TAKES THREE 200MG TABLETS FOR 600MG TOTAL DAILY DOSAGE
     Route: 065
     Dates: start: 201302

REACTIONS (8)
  - Blood pressure increased [Unknown]
  - Pain [Unknown]
  - Decreased appetite [Unknown]
  - Headache [Unknown]
  - Hair colour changes [Unknown]
  - Renal surgery [Unknown]
  - Tumour excision [Unknown]
  - Tooth infection [Unknown]

NARRATIVE: CASE EVENT DATE: 20150625
